FAERS Safety Report 4314491-8 (Version None)
Quarter: 2004Q1

REPORT INFORMATION
  Report Type: 
  Country: None (occurrence: None)
  Receive Date: 20040309
  Receipt Date: 20040227
  Transmission Date: 20041129
  Serious: Yes (Other)
  Sender: FDA-Public Use
  Company Number: PHNR2004AU00731

PATIENT
  Age: 6 Month
  Sex: Male

DRUGS (1)
  1. TEGRETOL [Suspect]
     Indication: CONVULSION
     Dosage: 70 MG BID AS 3.5 ML SOLUTION
     Route: 048
     Dates: start: 20030917

REACTIONS (1)
  - WEIGHT DECREASED [None]
